FAERS Safety Report 6173369-8 (Version None)
Quarter: 2009Q2

REPORT INFORMATION
  Report Type: 
  Country: None (occurrence: None)
  Receive Date: 20090424
  Receipt Date: 20081217
  Transmission Date: 20091009
  Serious: Yes (Other)
  Sender: FDA-Public Use
  Company Number: SPV1-2008-02797

PATIENT
  Age: 13 Year
  Sex: Male
  Weight: 53.5 kg

DRUGS (9)
  1. VYVANSE [Suspect]
     Indication: ATTENTION DEFICIT/HYPERACTIVITY DISORDER
     Dosage: SEE IMAGE
     Route: 048
     Dates: start: 20081022, end: 20081022
  2. VYVANSE [Suspect]
     Indication: ATTENTION DEFICIT/HYPERACTIVITY DISORDER
     Dosage: SEE IMAGE
     Route: 048
     Dates: start: 20081023, end: 20081026
  3. VYVANSE [Suspect]
     Indication: ATTENTION DEFICIT/HYPERACTIVITY DISORDER
     Dosage: SEE IMAGE
     Route: 048
     Dates: start: 20081027, end: 20081102
  4. VYVANSE [Suspect]
     Indication: ATTENTION DEFICIT/HYPERACTIVITY DISORDER
     Dosage: SEE IMAGE
     Route: 048
     Dates: start: 20081103, end: 20081113
  5. VYVANSE [Suspect]
     Indication: ATTENTION DEFICIT/HYPERACTIVITY DISORDER
     Dosage: SEE IMAGE
     Route: 048
     Dates: start: 20081114, end: 20081215
  6. ELIDEL [Concomitant]
  7. PROTOPIC [Concomitant]
  8. CLARITIN  /00413701/ (GLICLAZIDE) [Concomitant]
  9. ASMANEX TWISTHALER [Concomitant]

REACTIONS (11)
  - ABDOMINAL DISCOMFORT [None]
  - CONDITION AGGRAVATED [None]
  - DECREASED APPETITE [None]
  - DIZZINESS [None]
  - DRUG PRESCRIBING ERROR [None]
  - FREQUENT BOWEL MOVEMENTS [None]
  - HYPERTENSION [None]
  - INITIAL INSOMNIA [None]
  - OFF LABEL USE [None]
  - PALPITATIONS [None]
  - WEIGHT DECREASED [None]
